FAERS Safety Report 8832693 (Version 2)
Quarter: 2012Q4

REPORT INFORMATION
  Report Type: 
  Country: US (occurrence: US)
  Receive Date: 20121010
  Receipt Date: 20121101
  Transmission Date: 20130627
  Serious: No
  Sender: FDA-Public Use
  Company Number: US-009507513-1210USA004232

PATIENT

DRUGS (1)
  1. SAPHRIS [Suspect]
     Dosage: UNK

REACTIONS (1)
  - Akathisia [Unknown]
